FAERS Safety Report 7717638-6 (Version None)
Quarter: 2011Q3

REPORT INFORMATION
  Report Type: 
  Country: None (occurrence: None)
  Receive Date: 20110830
  Receipt Date: 20110824
  Transmission Date: 20111222
  Serious: Yes (Hospitalization)
  Sender: FDA-Public Use
  Company Number: FR-BRISTOL-MYERS SQUIBB COMPANY-16005316

PATIENT
  Age: 56 Year
  Sex: Male

DRUGS (10)
  1. SECTRAL [Concomitant]
  2. ASPIRIN [Concomitant]
  3. REYATAZ [Suspect]
     Indication: HIV INFECTION
     Route: 048
     Dates: start: 20110607, end: 20110706
  4. AMLODIPINE BESYLATE [Concomitant]
  5. RAMIPRIL [Concomitant]
  6. CELLCEPT [Concomitant]
     Route: 048
  7. NORVIR [Concomitant]
     Dates: start: 20110607
  8. PRAVASTATIN [Concomitant]
  9. TACROLIMUS [Suspect]
     Indication: TRANSPLANT REJECTION
     Dosage: INTER ON 6JUL11 AND RESTARTED ON 12JUL11 WITH A DOSE OF 3MG BID
     Route: 048
     Dates: start: 20091101
  10. ABACAVIR SULFATE AND LAMIVUDINE [Concomitant]
     Dosage: 7JUN2011

REACTIONS (3)
  - HEADACHE [None]
  - OVERDOSE [None]
  - GASTROINTESTINAL DISORDER [None]
